FAERS Safety Report 12630997 (Version 2)
Quarter: 2016Q3

REPORT INFORMATION
  Report Type: Spontaneous
  Country: US (occurrence: US)
  Receive Date: 20160808
  Receipt Date: 20160808
  Transmission Date: 20161109
  Serious: No
  Sender: FDA-Public Use
  Company Number: US-BEH-2015051796

PATIENT
  Sex: Female
  Weight: 94 kg

DRUGS (9)
  1. ZALEPLON. [Concomitant]
     Active Substance: ZALEPLON
  2. ATIVAN [Concomitant]
     Active Substance: LORAZEPAM
  3. TRI-SPRINTEC [Concomitant]
     Active Substance: ETHINYL ESTRADIOL\NORGESTIMATE
  4. LAMICTAL [Concomitant]
     Active Substance: LAMOTRIGINE
  5. IBUPROFEN. [Concomitant]
     Active Substance: IBUPROFEN
  6. VITAMIN D2 [Concomitant]
     Active Substance: ERGOCALCIFEROL
  7. EPIPEN [Concomitant]
     Active Substance: EPINEPHRINE
  8. VITAMIN B12 [Concomitant]
     Active Substance: CYANOCOBALAMIN
  9. HIZENTRA [Suspect]
     Active Substance: HUMAN IMMUNOGLOBULIN G
     Indication: IMMUNODEFICIENCY COMMON VARIABLE
     Route: 058

REACTIONS (2)
  - Fatigue [Unknown]
  - Headache [Unknown]
